FAERS Safety Report 5815497-X (Version None)
Quarter: 2008Q3

REPORT INFORMATION
  Report Type: 
  Country: None (occurrence: None)
  Receive Date: 20080718
  Receipt Date: 20080707
  Transmission Date: 20090109
  Serious: Yes (Other)
  Sender: FDA-Public Use
  Company Number: US-PFIZER INC-2008057382

PATIENT
  Sex: Male
  Weight: 59 kg

DRUGS (7)
  1. CHANTIX [Suspect]
     Indication: EX-TOBACCO USER
     Route: 048
     Dates: start: 20080704, end: 20080704
  2. DIAZEPAM [Concomitant]
  3. OXYBUTYN [Concomitant]
  4. MIRALAX [Concomitant]
  5. DOCUSATE [Concomitant]
  6. GABAPENTIN [Concomitant]
  7. WARFARIN SODIUM [Concomitant]

REACTIONS (2)
  - GASTROINTESTINAL MOTILITY DISORDER [None]
  - INTESTINAL OBSTRUCTION [None]
